FAERS Safety Report 5406998-7 (Version None)
Quarter: 2007Q3

REPORT INFORMATION
  Report Type: 
  Country: None (occurrence: None)
  Receive Date: 20070807
  Receipt Date: 20070727
  Transmission Date: 20080115
  Serious: Yes (Death)
  Sender: FDA-Public Use
  Company Number: HQWYE239427JUL07

PATIENT
  Age: 72 Year
  Sex: Male

DRUGS (4)
  1. PROPRANOLOL HYDROCHLORIDE [Suspect]
     Indication: THYROTOXIC CRISIS
     Route: 048
     Dates: start: 20051115
  2. CEFTRIAXONE [Concomitant]
     Indication: SEPSIS
     Dosage: UNKNOWN
     Route: 042
     Dates: start: 20051115
  3. PROPYLTHIOURACIL [Concomitant]
     Indication: THYROTOXIC CRISIS
     Route: 048
     Dates: start: 20051115
  4. HYDROCORTISONE [Concomitant]
     Indication: THYROTOXIC CRISIS
     Route: 042
     Dates: start: 20051115

REACTIONS (2)
  - CARDIO-RESPIRATORY ARREST [None]
  - CIRCULATORY COLLAPSE [None]
